FAERS Safety Report 17712399 (Version 1)
Quarter: 2020Q2

REPORT INFORMATION
  Report Type: Spontaneous
  Country: CA (occurrence: CA)
  Receive Date: 20200427
  Receipt Date: 20200427
  Transmission Date: 20200714
  Serious: Yes (Hospitalization)
  Sender: FDA-Public Use
  Company Number: CA-JNJFOC-20200433415

PATIENT
  Age: 89 Year
  Sex: Male
  Weight: 64 kg

DRUGS (6)
  1. XARELTO [Suspect]
     Active Substance: RIVAROXABAN
     Indication: THROMBOSIS PROPHYLAXIS
     Dosage: 15 MG, QD
     Route: 048
  2. DENOSUMAB [Concomitant]
     Active Substance: DENOSUMAB
  3. DUTASTERIDE. [Concomitant]
     Active Substance: DUTASTERIDE
  4. TAMSULOSIN [Concomitant]
     Active Substance: TAMSULOSIN
  5. XARELTO [Suspect]
     Active Substance: RIVAROXABAN
     Indication: ATRIAL FIBRILLATION
  6. AMIODARONE [Concomitant]
     Active Substance: AMIODARONE

REACTIONS (3)
  - Blood creatinine increased [Unknown]
  - Haemoglobin decreased [Unknown]
  - Rectal haemorrhage [Unknown]
